FAERS Safety Report 8556071-4 (Version None)
Quarter: 2012Q3

REPORT INFORMATION
  Report Type: 
  Country: None (occurrence: None)
  Receive Date: 20120719
  Receipt Date: 20120709
  Transmission Date: 20120928
  Serious: No
  Sender: FDA-Public Use
  Company Number: CL-434-2012

PATIENT
  Age: 47 Year
  Sex: Female
  Weight: 108.3 kg

DRUGS (12)
  1. CODEINE PHOSPHATE [Concomitant]
  2. METRONIDAZOLE [Suspect]
     Indication: URINARY TRACT INFECTION
     Dosage: 400 MG TID, UNK
     Dates: start: 20120607, end: 20120614
  3. AMITRIPTYLINE HCL [Concomitant]
  4. FORCEVAL (MULTI-VITAMIN) [Concomitant]
  5. DIAZEPAM [Concomitant]
  6. ESOMEPRAZOLE [Concomitant]
  7. NOVOMIX (INSULIN ASPART) [Concomitant]
  8. WARFARIN SODIUM [Concomitant]
  9. PROCHLORPERAZINE [Concomitant]
  10. TRIMETHOPRIM [Concomitant]
  11. ATENOLOL [Concomitant]
  12. EXENATIDE [Concomitant]

REACTIONS (2)
  - ASTHMA [None]
  - DYSPNOEA [None]
